FAERS Safety Report 9140987 (Version 2)
Quarter: 2013Q2

REPORT INFORMATION
  Report Type: Spontaneous
  Country: GB (occurrence: GB)
  Receive Date: 20130305
  Receipt Date: 20130404
  Transmission Date: 20140414
  Serious: Yes (Other)
  Sender: FDA-Public Use
  Company Number: GB-BRISTOL-MYERS SQUIBB COMPANY-17030529

PATIENT
  Age: 40 Year
  Sex: Female
  Weight: 70 kg

DRUGS (3)
  1. REYATAZ [Suspect]
  2. NORVIR [Suspect]
  3. TRUVADA [Suspect]
     Dosage: 1 TABLET

REACTIONS (5)
  - Pre-eclampsia [Unknown]
  - Diabetes mellitus [Unknown]
  - Twin pregnancy [Recovered/Resolved]
  - Premature delivery [Unknown]
  - Live birth [Unknown]
